FAERS Safety Report 17258074 (Version 1)
Quarter: 2020Q1

REPORT INFORMATION
  Report Type: Spontaneous
  Country: US (occurrence: US)
  Receive Date: 20200110
  Receipt Date: 20200110
  Transmission Date: 20200409
  Serious: Yes (Hospitalization, Other)
  Sender: FDA-Public Use
  Company Number: US-HIKMA PHARMACEUTICALS USA INC.-US-H14001-20-00037

PATIENT
  Age: 27 Year
  Sex: Male

DRUGS (3)
  1. MESNA. [Suspect]
     Active Substance: MESNA
     Indication: EPITHELIOID SARCOMA
     Route: 065
  2. IFOSFAMIDE. [Suspect]
     Active Substance: IFOSFAMIDE
     Indication: EPITHELIOID SARCOMA
     Route: 042
  3. DOXORUBICIN [Suspect]
     Active Substance: DOXORUBICIN
     Indication: EPITHELIOID SARCOMA
     Route: 041

REACTIONS (1)
  - Neurotoxicity [Unknown]
